FAERS Safety Report 23896378 (Version 2)
Quarter: 2024Q3

REPORT INFORMATION
  Report Type: Spontaneous
  Country: AT (occurrence: AT)
  Receive Date: 20240524
  Receipt Date: 20240703
  Transmission Date: 20241017
  Serious: No
  Sender: JOHNSON AND JOHNSON
  Company Number: AT-JNJFOC-20240567932

PATIENT

DRUGS (2)
  1. RISPERDAL [Suspect]
     Active Substance: RISPERIDONE
     Indication: Product used for unknown indication
     Dosage: DOSE: UNKNOWN
     Route: 048
  2. RISPERDAL [Suspect]
     Active Substance: RISPERIDONE

REACTIONS (1)
  - Device issue [Unknown]
